FAERS Safety Report 17188069 (Version 1)
Quarter: 2019Q4

REPORT INFORMATION
  Report Type: Spontaneous
  Country: FR (occurrence: FR)
  Receive Date: 20191221
  Receipt Date: 20191221
  Transmission Date: 20200122
  Serious: Yes (Hospitalization)
  Sender: FDA-Public Use
  Company Number: FR-ACCORD-166550

PATIENT
  Age: 71 Year
  Sex: Male
  Weight: 93 kg

DRUGS (13)
  1. CAPECITABINE. [Suspect]
     Active Substance: CAPECITABINE
     Indication: HEPATOCELLULAR CARCINOMA
     Route: 048
     Dates: start: 20191026, end: 20191105
  2. KERLONE [Concomitant]
     Active Substance: BETAXOLOL HYDROCHLORIDE
     Dosage: STRENGTH: 20 MG
     Route: 048
  3. NEORAL [Concomitant]
     Active Substance: CYCLOSPORINE
     Route: 048
  4. LANTUS [Concomitant]
     Active Substance: INSULIN GLARGINE
     Route: 058
  5. TRIATEC [Concomitant]
     Dosage: STRENGTH: 5 MG
     Route: 048
     Dates: end: 20191109
  6. LERCAN [Concomitant]
     Active Substance: LERCANIDIPINE
     Dosage: STRENGTH: 20 MG
     Route: 048
  7. KARDEGIC [Concomitant]
     Active Substance: ASPIRIN DL-LYSINE
     Dosage: STRENGTH: 160 MG
     Route: 048
  8. SPECIAFOLDINE [Concomitant]
     Active Substance: FOLIC ACID
     Dosage: STRENGTH: 5 MG
     Route: 048
     Dates: end: 20191109
  9. EUPRESSYL [Concomitant]
     Active Substance: URAPIDIL
     Dosage: STRENGTH: 60 MG
     Route: 048
  10. RILMENIDINE/RILMENIDINE PHOSPHATE [Concomitant]
     Active Substance: RILMENIDINE
     Route: 048
  11. SOLUPRED [Concomitant]
     Route: 048
  12. FUROSEMIDE. [Concomitant]
     Active Substance: FUROSEMIDE
     Route: 048
     Dates: end: 20191109
  13. ESOMEPRAZOLE/ESOMEPRAZOLE MAGNESIUM/ESOMEPRAZOLE SODIUM [Concomitant]
     Active Substance: ESOMEPRAZOLE
     Route: 048

REACTIONS (9)
  - Neutropenia [Recovered/Resolved]
  - Decreased appetite [Recovered/Resolved]
  - Infection [Recovered/Resolved]
  - Asthenia [Recovered/Resolved]
  - Diarrhoea [Recovered/Resolved]
  - Weight decreased [Recovered/Resolved]
  - Nausea [Recovered/Resolved]
  - Vomiting [Recovered/Resolved]
  - Off label use [Unknown]

NARRATIVE: CASE EVENT DATE: 201911
